FAERS Safety Report 24130356 (Version 1)
Quarter: 2024Q3

REPORT INFORMATION
  Report Type: Spontaneous
  Country: US (occurrence: US)
  Receive Date: 20240724
  Receipt Date: 20240724
  Transmission Date: 20241016
  Serious: No
  Sender: STEMLINE THERAPEUTICS
  Company Number: US-Stemline Therapeutics, Inc.-2024ST003558

PATIENT
  Age: 61 Year
  Sex: Female

DRUGS (1)
  1. ORSERDU [Suspect]
     Active Substance: ELACESTRANT
     Indication: Product used for unknown indication
     Dosage: 345 MG
     Route: 048
     Dates: start: 20240111

REACTIONS (7)
  - Sinus headache [Not Recovered/Not Resolved]
  - Carbohydrate antigen 125 increased [Not Recovered/Not Resolved]
  - Gastrointestinal disorder [Not Recovered/Not Resolved]
  - Nausea [Unknown]
  - Vomiting [Not Recovered/Not Resolved]
  - Blood cholesterol increased [Not Recovered/Not Resolved]
  - Fatigue [Not Recovered/Not Resolved]
